FAERS Safety Report 4471874-3 (Version None)
Quarter: 2004Q4

REPORT INFORMATION
  Report Type: 
  Country: None (occurrence: None)
  Receive Date: 20041007
  Receipt Date: 20040928
  Transmission Date: 20050328
  Serious: Yes (Other)
  Sender: FDA-Public Use
  Company Number: 2004-09-0368

PATIENT
  Age: 3 Year
  Sex: Male
  Weight: 13 kg

DRUGS (3)
  1. CELESTONE [Suspect]
     Indication: LARYNGITIS
     Dosage: SEE IMAGE
     Route: 048
     Dates: start: 20040908, end: 20040908
  2. CELESTONE [Suspect]
     Indication: LARYNGITIS
     Dosage: SEE IMAGE
     Route: 048
     Dates: start: 20040909, end: 20040909
  3. PARACETAMOL [Concomitant]

REACTIONS (4)
  - COGWHEEL RIGIDITY [None]
  - DYSKINESIA [None]
  - EXTRAPYRAMIDAL DISORDER [None]
  - TORTICOLLIS [None]
